FAERS Safety Report 25267361 (Version 1)
Quarter: 2025Q2

REPORT INFORMATION
  Report Type: Spontaneous
  Country: US (occurrence: US)
  Receive Date: 20250505
  Receipt Date: 20250505
  Transmission Date: 20250716
  Serious: Yes (Other)
  Sender: ELI LILLY AND COMPANY
  Company Number: US-ELI_LILLY_AND_COMPANY-US202504021749

PATIENT
  Age: 64 Year
  Sex: Female

DRUGS (1)
  1. ZEPBOUND [Suspect]
     Active Substance: TIRZEPATIDE
     Indication: Product used for unknown indication
     Route: 065
     Dates: start: 20250418

REACTIONS (8)
  - Syncope [Unknown]
  - Feeding disorder [Unknown]
  - Dizziness [Unknown]
  - Nausea [Unknown]
  - Abdominal distension [Unknown]
  - Eructation [Unknown]
  - Frequent bowel movements [Unknown]
  - Fatigue [Unknown]
